FAERS Safety Report 8251344-7 (Version None)
Quarter: 2012Q2

REPORT INFORMATION
  Report Type: 
  Country: None (occurrence: None)
  Receive Date: 20120402
  Receipt Date: 20120330
  Transmission Date: 20120825
  Serious: Yes (Hospitalization)
  Sender: FDA-Public Use
  Company Number: US-GLAXOSMITHKLINE-B0752520A

PATIENT
  Age: 43 Year
  Sex: Male
  Weight: 93.2 kg

DRUGS (1)
  1. AVANDIA [Suspect]
     Indication: DIABETES MELLITUS
     Dosage: 4MG TWICE PER DAY
     Route: 048
     Dates: start: 20070101, end: 20070901

REACTIONS (5)
  - CEREBROVASCULAR ACCIDENT [None]
  - HEMIPARESIS [None]
  - CEREBRAL INFARCTION [None]
  - SENSORY LOSS [None]
  - HYPOAESTHESIA [None]
